FAERS Safety Report 5244177-7 (Version None)
Quarter: 2007Q1

REPORT INFORMATION
  Report Type: 
  Country: None (occurrence: None)
  Receive Date: 20070222
  Receipt Date: 20070216
  Transmission Date: 20070707
  Serious: Yes (Hospitalization)
  Sender: FDA-Public Use
  Company Number: 2007-0011032

PATIENT
  Age: 45 Year
  Sex: Male

DRUGS (8)
  1. VALTREX [Suspect]
     Indication: HERPES SIMPLEX
     Dates: end: 20061201
  2. TRUVADA [Suspect]
     Indication: HIV INFECTION
     Dates: start: 20051229, end: 20061228
  3. KALETRA [Suspect]
     Route: 048
     Dates: start: 20051229, end: 20061228
  4. PRINZIDE [Suspect]
     Dates: start: 20060424, end: 20061201
  5. PAXIL [Concomitant]
     Indication: DEPRESSION
     Dosage: 30MG PER DAY
     Route: 048
     Dates: start: 20060130
  6. PROSCAR [Concomitant]
     Indication: BENIGN PROSTATIC HYPERPLASIA
     Route: 048
     Dates: start: 20060130
  7. VISTARIL [Concomitant]
     Indication: ANXIETY
     Dosage: 25MG AS REQUIRED
     Dates: start: 20061029
  8. PREVACID [Concomitant]
     Route: 048
     Dates: start: 20060130

REACTIONS (5)
  - BLOOD CREATININE INCREASED [None]
  - NAUSEA [None]
  - ORAL INTAKE REDUCED [None]
  - RENAL FAILURE ACUTE [None]
  - VOMITING [None]
